FAERS Safety Report 7786775-2 (Version None)
Quarter: 2011Q3

REPORT INFORMATION
  Report Type: 
  Country: None (occurrence: None)
  Receive Date: 20110929
  Receipt Date: 20110923
  Transmission Date: 20111222
  Serious: Yes (Other)
  Sender: FDA-Public Use
  Company Number: US-PFIZER INC-2011228053

PATIENT
  Sex: Female

DRUGS (1)
  1. GLUCOTROL XL [Suspect]
     Indication: BLOOD GLUCOSE ABNORMAL
     Dosage: 5 MG, UNK

REACTIONS (3)
  - BLOOD GLUCOSE INCREASED [None]
  - RECURRENT CANCER [None]
  - STRESS [None]
